FAERS Safety Report 6768062-4 (Version None)
Quarter: 2010Q2

REPORT INFORMATION
  Report Type: 
  Country: None (occurrence: None)
  Receive Date: 20100614
  Receipt Date: 20100610
  Transmission Date: 20101027
  Serious: Yes (Death)
  Sender: FDA-Public Use
  Company Number: BR-ASTRAZENECA-2010SE26990

PATIENT
  Age: 80 Year
  Sex: Male

DRUGS (2)
  1. NEXIUM [Suspect]
     Indication: GASTRIC DISORDER
     Route: 050
     Dates: start: 20070101
  2. CRESTOR [Suspect]
     Indication: BLOOD DISORDER
     Dosage: OD
     Route: 050

REACTIONS (2)
  - DRUG ADMINISTRATION ERROR [None]
  - MYOCARDIAL INFARCTION [None]
